FAERS Safety Report 7154179-1 (Version None)
Quarter: 2010Q4

REPORT INFORMATION
  Report Type: 
  Country: None (occurrence: None)
  Receive Date: 20101213
  Receipt Date: 20101201
  Transmission Date: 20110411
  Serious: Yes (Other)
  Sender: FDA-Public Use
  Company Number: US-ELI_LILLY_AND_COMPANY-US201012001196

PATIENT
  Sex: Female

DRUGS (3)
  1. HUMATROPE [Suspect]
     Indication: GROWTH HORMONE DEFICIENCY
     Dosage: SIX CLICKS OF 6MG CATRIDGE, DAILY (1/D)
     Dates: start: 20010101
  2. GLYPRIDE [Concomitant]
  3. METFORMIN HCL [Concomitant]

REACTIONS (4)
  - ACROCHORDON [None]
  - DIABETES MELLITUS [None]
  - MEMORY IMPAIRMENT [None]
  - THYROID NEOPLASM [None]
